FAERS Safety Report 20668096 (Version 1)
Quarter: 2022Q2

REPORT INFORMATION
  Report Type: Report from Study
  Country: US (occurrence: US)
  Receive Date: 20220404
  Receipt Date: 20220404
  Transmission Date: 20220721
  Serious: Yes (Other)
  Sender: FDA-Public Use
  Company Number: US-JAZZ-2022-US-009393

PATIENT
  Sex: Female

DRUGS (6)
  1. XYREM [Suspect]
     Active Substance: SODIUM OXYBATE
     Indication: Narcolepsy
     Dosage: 4.5 GRAM, BID
     Route: 048
     Dates: start: 200702, end: 200810
  2. XYREM [Suspect]
     Active Substance: SODIUM OXYBATE
     Indication: Cataplexy
     Dosage: DOSE ADJUSTMENT
     Route: 048
     Dates: start: 200810, end: 202001
  3. XYREM [Suspect]
     Active Substance: SODIUM OXYBATE
     Indication: Somnolence
     Dosage: 3.5 GRAM
     Route: 048
     Dates: start: 202001
  4. LISINOPRIL [Concomitant]
     Active Substance: LISINOPRIL
     Indication: Product used for unknown indication
     Dosage: UNK
     Dates: start: 20140522
  5. BRIMONIDINE [Concomitant]
     Active Substance: BRIMONIDINE TARTRATE
     Dosage: UNK
     Dates: start: 20220101
  6. DORZOLAMIDE HYDROCHLORIDE [Concomitant]
     Active Substance: DORZOLAMIDE HYDROCHLORIDE
     Dosage: UNK
     Dates: start: 20220101

REACTIONS (20)
  - Glaucoma surgery [Unknown]
  - Hand fracture [Recovered/Resolved]
  - Peripheral swelling [Unknown]
  - Cellulitis [Unknown]
  - Fall [Unknown]
  - Scoliosis [Unknown]
  - Vertigo [Unknown]
  - Adjustment disorder with depressed mood [Unknown]
  - Face oedema [Unknown]
  - Feeling abnormal [Unknown]
  - Hypersensitivity [Unknown]
  - Flatulence [Unknown]
  - Pain [Unknown]
  - Malaise [Unknown]
  - Nausea [Unknown]
  - Nervousness [Unknown]
  - Blood pressure fluctuation [Unknown]
  - Asthenia [Unknown]
  - Vocal cord dysfunction [Unknown]
  - Nasal septum deviation [Unknown]
